FAERS Safety Report 9210482 (Version 10)
Quarter: 2014Q3

REPORT INFORMATION
  Report Type: Spontaneous
  Country: US (occurrence: US)
  Receive Date: 20130404
  Receipt Date: 20140911
  Transmission Date: 20150326
  Serious: Yes (Death, Hospitalization, Other)
  Sender: FDA-Public Use
  Company Number: US-JNJFOC-20130401366

PATIENT
  Sex: Male
  Weight: 56.7 kg

DRUGS (6)
  1. TYLENOL EXTRA STRENGTH [Suspect]
     Active Substance: ACETAMINOPHEN
     Indication: HEADACHE
     Route: 048
     Dates: start: 201101, end: 201103
  2. LORTAB [Suspect]
     Active Substance: ACETAMINOPHEN\HYDROCODONE BITARTRATE
     Indication: PRODUCT USED FOR UNKNOWN INDICATION
     Route: 065
     Dates: start: 201101, end: 201102
  3. TYLENOL PM [Suspect]
     Active Substance: ACETAMINOPHEN\DIPHENHYDRAMINE
     Indication: PAIN
     Route: 048
     Dates: start: 201101, end: 201103
  4. TYLENOL EXTRA STRENGTH [Suspect]
     Active Substance: ACETAMINOPHEN
     Indication: ABDOMINAL PAIN
     Route: 048
     Dates: start: 201101, end: 201103
  5. LISINOPRIL. [Suspect]
     Active Substance: LISINOPRIL
     Indication: PRODUCT USED FOR UNKNOWN INDICATION
     Route: 065
     Dates: start: 201101, end: 201102
  6. OMEPRAZOLE. [Suspect]
     Active Substance: OMEPRAZOLE
     Indication: PRODUCT USED FOR UNKNOWN INDICATION
     Route: 065
     Dates: start: 201101, end: 201102

REACTIONS (12)
  - Renal failure acute [Unknown]
  - Pancreatitis chronic [Unknown]
  - Metabolic acidosis [Unknown]
  - Acute respiratory failure [Unknown]
  - Labile blood pressure [Unknown]
  - Hepatic failure [Fatal]
  - Alcohol abuse [Unknown]
  - Hepatitis [Unknown]
  - Coagulopathy [Unknown]
  - Toxicity to various agents [Fatal]
  - Mental status changes [Unknown]
  - Anaemia [Unknown]

NARRATIVE: CASE EVENT DATE: 2011
